FAERS Safety Report 5719582-2 (Version None)
Quarter: 2008Q2

REPORT INFORMATION
  Report Type: 
  Country: None (occurrence: None)
  Receive Date: 20080428
  Receipt Date: 20080416
  Transmission Date: 20081010
  Serious: Yes (Other)
  Sender: FDA-Public Use
  Company Number: B0360783A

PATIENT
  Age: 51 Year
  Sex: Male

DRUGS (11)
  1. PAROXETINE HCL [Suspect]
     Route: 065
     Dates: start: 19990801
  2. PAROXETINE HCL [Suspect]
     Route: 065
  3. LOFEPRAMINE [Concomitant]
     Dates: start: 20040801, end: 20041201
  4. CITALOPRAM HYDROBROMIDE [Concomitant]
     Dates: start: 20041201, end: 20050801
  5. ESCITALOPRAM OXALATE [Concomitant]
     Dates: start: 20050801, end: 20051001
  6. SERTRALINE [Concomitant]
     Dates: start: 20051001, end: 20051201
  7. REBOXETINE [Concomitant]
     Dates: start: 20051201, end: 20061001
  8. DIAZEPAM [Concomitant]
     Dates: start: 20061001
  9. DULOXETINE [Concomitant]
     Dates: start: 20061001, end: 20070501
  10. OLANZAPINE [Concomitant]
     Dates: start: 20070201
  11. CITALOPRAM HYDROBROMIDE [Concomitant]
     Dates: start: 20070501

REACTIONS (8)
  - ANXIETY [None]
  - DEPRESSED MOOD [None]
  - ERECTILE DYSFUNCTION [None]
  - HYPOMANIA [None]
  - PARAESTHESIA [None]
  - PERSONALITY CHANGE [None]
  - TREMOR [None]
  - WITHDRAWAL SYNDROME [None]
